FAERS Safety Report 4514873-5 (Version None)
Quarter: 2004Q4

REPORT INFORMATION
  Report Type: 
  Country: None (occurrence: None)
  Receive Date: 20041201
  Receipt Date: 20041130
  Transmission Date: 20050328
  Serious: No
  Sender: FDA-Public Use
  Company Number: US-JNJFOC-20041104737

PATIENT
  Sex: Female
  Weight: 44.45 kg

DRUGS (2)
  1. DURAGESIC [Suspect]
     Route: 062
  2. HYDROCODONE [Concomitant]
     Indication: PAIN
     Dosage: 5 - 10 MG, 4 TIMES DAILY

REACTIONS (1)
  - NO ADVERSE EFFECT [None]
